FAERS Safety Report 4993382-3 (Version None)
Quarter: 2006Q2

REPORT INFORMATION
  Report Type: 
  Country: None (occurrence: None)
  Receive Date: 20060503
  Receipt Date: 20060503
  Transmission Date: 20061013
  Serious: Yes (Life-Threatening, Hospitalization)
  Sender: FDA-Public Use
  Company Number: None

PATIENT
  Sex: Female

DRUGS (5)
  1. CELECOXIB [Suspect]
     Indication: BREAST CANCER
     Dosage: 400 MG TWICE PER DAY ORAL
     Route: 048
     Dates: start: 20050608, end: 20050908
  2. NASONEX [Concomitant]
  3. SINGULAIR [Concomitant]
  4. ZIAC [Concomitant]
  5. ALLEGRA [Concomitant]

REACTIONS (7)
  - ACUTE MYOCARDIAL INFARCTION [None]
  - ATRIAL FIBRILLATION [None]
  - DRUG HYPERSENSITIVITY [None]
  - EJECTION FRACTION DECREASED [None]
  - OEDEMA [None]
  - RESPIRATORY DISTRESS [None]
  - VENTRICULAR DYSFUNCTION [None]
